FAERS Safety Report 5585076-0 (Version None)
Quarter: 2008Q1

REPORT INFORMATION
  Report Type: 
  Country: None (occurrence: None)
  Receive Date: 20080109
  Receipt Date: 20080107
  Transmission Date: 20080703
  Serious: Yes (Other)
  Sender: FDA-Public Use
  Company Number: US-JNJFOC-20070804941

PATIENT
  Sex: Female
  Weight: 75.3 kg

DRUGS (18)
  1. REMICADE [Suspect]
     Route: 042
  2. REMICADE [Suspect]
     Route: 042
  3. REMICADE [Suspect]
     Route: 042
  4. REMICADE [Suspect]
     Route: 042
  5. REMICADE [Suspect]
     Route: 042
  6. REMICADE [Suspect]
     Route: 042
  7. REMICADE [Suspect]
     Indication: RHEUMATOID ARTHRITIS
     Route: 042
  8. KEFLEX [Suspect]
     Indication: GINGIVAL INFECTION
  9. CENTROID [Concomitant]
     Indication: THYROID DISORDER
  10. FOLIC ACID [Concomitant]
  11. LISINOPRIL [Concomitant]
     Indication: HYPERTENSION
     Dosage: 5-10 MG
  12. HYDROCHLOROTHIAZIDE [Concomitant]
     Indication: HYPERTENSION
  13. METHOTREXATE [Concomitant]
     Indication: RHEUMATOID ARTHRITIS
     Dosage: 6-8 WEEKS
  14. PREMPRO [Concomitant]
  15. SYNTHROID [Concomitant]
     Indication: HYPOTHYROIDISM
  16. OMEPRAZOLE [Concomitant]
     Indication: GASTROOESOPHAGEAL REFLUX DISEASE
  17. EVOXAC [Concomitant]
     Indication: RHEUMATOID ARTHRITIS
  18. AMITRIPTYLINE HCL [Concomitant]

REACTIONS (3)
  - ABDOMINAL PAIN UPPER [None]
  - DIARRHOEA [None]
  - WEIGHT DECREASED [None]
